FAERS Safety Report 11008755 (Version 2)
Quarter: 2015Q2

REPORT INFORMATION
  Report Type: Spontaneous
  Country: US (occurrence: None)
  Receive Date: 20150408
  Receipt Date: 20150420
  Transmission Date: 20150821
  Serious: Yes (Life-Threatening, Hospitalization, Other)
  Sender: FDA-Public Use
  Company Number: DSU-2014-00120

PATIENT
  Age: 57 Year
  Sex: Male

DRUGS (3)
  1. BENICAR [Suspect]
     Active Substance: OLMESARTAN MEDOXOMIL
     Indication: PRODUCT USED FOR UNKNOWN INDICATION
  2. CENTRUM SILVER [Concomitant]
     Active Substance: VITAMINS
  3. AZOR [Suspect]
     Active Substance: AMLODIPINE BESYLATE\OLMESARTAN MEDOXOMIL
     Indication: HYPERTENSION
     Route: 048
     Dates: start: 200801, end: 201005

REACTIONS (21)
  - Chronic kidney disease [None]
  - Depression [None]
  - Acute kidney injury [None]
  - Decubitus ulcer [None]
  - Gastric polyps [None]
  - Fall [None]
  - Iritis [None]
  - Diabetes mellitus [None]
  - Insomnia [None]
  - Hiatus hernia [None]
  - Septic embolus [None]
  - Cytomegalovirus enterocolitis [None]
  - Overgrowth bacterial [None]
  - Gastrooesophageal reflux disease [None]
  - Staphylococcal infection [None]
  - Urinary tract infection [None]
  - Alopecia [None]
  - Bacteraemia [None]
  - Large intestinal ulcer [None]
  - Malabsorption [None]
  - Arthropathy [None]

NARRATIVE: CASE EVENT DATE: 2008
